FAERS Safety Report 25447076 (Version 1)
Quarter: 2025Q2

REPORT INFORMATION
  Report Type: Spontaneous
  Country: US (occurrence: US)
  Receive Date: 20250617
  Receipt Date: 20250617
  Transmission Date: 20250717
  Serious: No
  Sender: SANOFI AVENTIS
  Company Number: US-SA-2025SA165375

PATIENT
  Sex: Female

DRUGS (45)
  1. DUPIXENT [Suspect]
     Active Substance: DUPILUMAB
     Indication: Essential hypertension
     Dosage: 300 MG, QOW
     Route: 058
  2. BENZONATATE [Concomitant]
     Active Substance: BENZONATATE
  3. LORATADINE [Concomitant]
     Active Substance: LORATADINE
  4. AZITHROMYCIN [Concomitant]
     Active Substance: AZITHROMYCIN
  5. BETAMETHASONE [Concomitant]
     Active Substance: BETAMETHASONE
  6. BUMETANIDE [Concomitant]
     Active Substance: BUMETANIDE
  7. CARVEDILOL [Concomitant]
     Active Substance: CARVEDILOL
  8. HYDROXYZINE [Concomitant]
     Active Substance: HYDROXYZINE HYDROCHLORIDE
  9. JARDIANCE [Concomitant]
     Active Substance: EMPAGLIFLOZIN
  10. LOKELMA [SODIUM ZIRCONIUM CYCLOSILICATE HYDRATE] [Concomitant]
  11. METHYLPREDNIS [Concomitant]
  12. MIRTAZAPINE [Concomitant]
     Active Substance: MIRTAZAPINE
  13. MOMETASONE [Concomitant]
     Active Substance: MOMETASONE
  14. MUPIROCIN [Concomitant]
     Active Substance: MUPIROCIN
  15. NIFEDIPINE [Concomitant]
     Active Substance: NIFEDIPINE
  16. PANTOPRAZOLE [Concomitant]
     Active Substance: PANTOPRAZOLE
  17. PREDNISONE [Concomitant]
     Active Substance: PREDNISONE
  18. SEVELAMER [Concomitant]
     Active Substance: SEVELAMER
  19. SODIUM POLYSTYRENE SULFONATE [Concomitant]
     Active Substance: SODIUM POLYSTYRENE SULFONATE
  20. SYMBICORT [Concomitant]
     Active Substance: BUDESONIDE\FORMOTEROL FUMARATE DIHYDRATE
  21. TRIAMCINOLON COMPO [Concomitant]
  22. ALPRAZOLAM [Concomitant]
     Active Substance: ALPRAZOLAM
  23. ASPIRIN [Concomitant]
     Active Substance: ASPIRIN
  24. ATENOLOL [Concomitant]
     Active Substance: ATENOLOL
  25. CLONIDINE [Concomitant]
     Active Substance: CLONIDINE
  26. NIFEDIPINE [Concomitant]
     Active Substance: NIFEDIPINE
  27. NYSTATIN [Concomitant]
     Active Substance: NYSTATIN
  28. PREDNISONE [Concomitant]
     Active Substance: PREDNISONE
  29. PROGRAF [Concomitant]
     Active Substance: TACROLIMUS
  30. VALCYTE [Concomitant]
     Active Substance: VALGANCICLOVIR HYDROCHLORIDE
  31. ZOLPIDEM TARTRATE [Concomitant]
     Active Substance: ZOLPIDEM TARTRATE
  32. GAMMAGARD [Concomitant]
     Active Substance: HUMAN IMMUNOGLOBULIN G
  33. NIFEDICAL XL [Concomitant]
     Active Substance: NIFEDIPINE
  34. XANAX [Concomitant]
     Active Substance: ALPRAZOLAM
  35. AMBIEN [Concomitant]
     Active Substance: ZOLPIDEM TARTRATE
  36. TAMIFLU EBB [Concomitant]
  37. ZITHROMAX [Concomitant]
     Active Substance: AZITHROMYCIN DIHYDRATE
  38. BACTRIM [Concomitant]
     Active Substance: SULFAMETHOXAZOLE\TRIMETHOPRIM
  39. VALGANCICLOVIR [Concomitant]
     Active Substance: VALGANCICLOVIR
  40. NYSTATIN [Concomitant]
     Active Substance: NYSTATIN
  41. PRILOSEC OTC [Concomitant]
     Active Substance: OMEPRAZOLE MAGNESIUM
  42. ENDOCET [Concomitant]
     Active Substance: ACETAMINOPHEN\OXYCODONE HYDROCHLORIDE
  43. HYDRALAZINE HYDROCHLORIDE [Concomitant]
     Active Substance: HYDRALAZINE HYDROCHLORIDE
  44. DIOVAN [Concomitant]
     Active Substance: VALSARTAN
  45. MEGESTROL ACETATE [Concomitant]
     Active Substance: MEGESTROL ACETATE

REACTIONS (8)
  - Eyelid pain [Not Recovered/Not Resolved]
  - Swelling of eyelid [Not Recovered/Not Resolved]
  - Insomnia [Not Recovered/Not Resolved]
  - Back pain [Not Recovered/Not Resolved]
  - Cough [Not Recovered/Not Resolved]
  - Pain of skin [Not Recovered/Not Resolved]
  - Tearfulness [Not Recovered/Not Resolved]
  - Product use in unapproved indication [Unknown]
